FAERS Safety Report 6546762-9 (Version None)
Quarter: 2010Q1

REPORT INFORMATION
  Report Type: 
  Country: None (occurrence: None)
  Receive Date: 20100122
  Receipt Date: 20100112
  Transmission Date: 20100710
  Serious: Yes (Death, Hospitalization, Other)
  Sender: FDA-Public Use
  Company Number: US-PFIZER INC-2009298983

PATIENT
  Sex: Male

DRUGS (4)
  1. SUTENT [Suspect]
     Dosage: 50 MG, 1X/DAY
  2. TOPOTECAN [Suspect]
  3. CARBOPLATIN [Concomitant]
     Indication: SMALL CELL CARCINOMA
  4. ETOPOSIDE [Concomitant]
     Indication: SMALL CELL CARCINOMA

REACTIONS (6)
  - DIARRHOEA [None]
  - DISEASE PROGRESSION [None]
  - HYPOKALAEMIA [None]
  - MULTI-ORGAN FAILURE [None]
  - SEPTIC SHOCK [None]
  - SMALL CELL LUNG CANCER STAGE UNSPECIFIED [None]
